FAERS Safety Report 25124865 (Version 2)
Quarter: 2025Q2

REPORT INFORMATION
  Report Type: Spontaneous
  Country: US (occurrence: US)
  Receive Date: 20250326
  Receipt Date: 20250422
  Transmission Date: 20250717
  Serious: Yes (Other)
  Sender: UCB
  Company Number: US-UCBSA-2025011502

PATIENT
  Sex: Male
  Weight: 161.02 kg

DRUGS (1)
  1. BIMZELX [Suspect]
     Active Substance: BIMEKIZUMAB-BKZX
     Indication: Hidradenitis
     Dosage: 320 MILLIGRAM, EV 2 WEEKS(QOW) (FOR WEEKS 0-16 THEN EVERY 4 WEEKS AS)
     Route: 058
     Dates: start: 202501, end: 2025

REACTIONS (4)
  - Hepatic vein thrombosis [Unknown]
  - Respiratory syncytial virus infection [Unknown]
  - Illness [Unknown]
  - Product availability issue [Unknown]

NARRATIVE: CASE EVENT DATE: 20250101
